FAERS Safety Report 24612371 (Version 1)
Quarter: 2024Q4

REPORT INFORMATION
  Report Type: Spontaneous
  Country: CA (occurrence: CA)
  Receive Date: 20241113
  Receipt Date: 20241113
  Transmission Date: 20250114
  Serious: Yes (Death, Life-Threatening, Hospitalization, Disabling, Congenital Anomaly, Other)
  Sender: Haleon PLC
  Company Number: CA-002147023-NVSC2024CA109806

PATIENT
  Age: 48 Year
  Sex: Female

DRUGS (68)
  1. DICLOFENAC POTASSIUM [Suspect]
     Active Substance: DICLOFENAC POTASSIUM
     Indication: Product used for unknown indication
     Route: 065
  2. PERIOGARD [Suspect]
     Active Substance: CHLORHEXIDINE GLUCONATE
     Indication: Product used for unknown indication
     Route: 065
  3. OTEZLA [Suspect]
     Active Substance: APREMILAST
     Indication: Product used for unknown indication
     Route: 048
  4. PSEUDOEPHEDRINE HYDROCHLORIDE [Suspect]
     Active Substance: PSEUDOEPHEDRINE HYDROCHLORIDE
     Indication: Product used for unknown indication
     Route: 048
  5. PSEUDOEPHEDRINE HYDROCHLORIDE [Suspect]
     Active Substance: PSEUDOEPHEDRINE HYDROCHLORIDE
     Indication: Rheumatoid arthritis
  6. PREDNISONE [Suspect]
     Active Substance: PREDNISONE
     Indication: Rheumatoid arthritis
     Route: 048
  7. SIMPONI [Suspect]
     Active Substance: GOLIMUMAB
     Indication: Rheumatoid arthritis
     Dosage: UNK (SOLUTION SUBCUTANEOUS)
     Route: 058
  8. SIMPONI [Suspect]
     Active Substance: GOLIMUMAB
     Route: 042
  9. SIMPONI [Suspect]
     Active Substance: GOLIMUMAB
     Route: 058
  10. SIMPONI [Suspect]
     Active Substance: GOLIMUMAB
     Route: 058
  11. COSENTYX [Concomitant]
     Active Substance: SECUKINUMAB
     Indication: Product used for unknown indication
  12. PREDNISONE [Suspect]
     Active Substance: PREDNISONE
     Indication: Rheumatoid arthritis
     Route: 065
  13. PREDNISONE [Suspect]
     Active Substance: PREDNISONE
     Indication: Condition aggravated
     Route: 042
  14. PREDNISONE [Suspect]
     Active Substance: PREDNISONE
     Route: 048
  15. PREDNISONE [Suspect]
     Active Substance: PREDNISONE
     Route: 048
  16. PREDNISONE [Suspect]
     Active Substance: PREDNISONE
     Route: 065
  17. PREDNISONE [Suspect]
     Active Substance: PREDNISONE
     Route: 016
  18. PREDNISONE [Suspect]
     Active Substance: PREDNISONE
     Route: 048
  19. PREDNISONE [Suspect]
     Active Substance: PREDNISONE
     Route: 061
  20. PREDNISONE [Suspect]
     Active Substance: PREDNISONE
     Route: 065
  21. ORENCIA [Suspect]
     Active Substance: ABATACEPT
     Indication: Rheumatoid arthritis
     Route: 064
  22. ORENCIA [Suspect]
     Active Substance: ABATACEPT
     Indication: Product used for unknown indication
     Route: 058
  23. ORENCIA [Suspect]
     Active Substance: ABATACEPT
     Route: 058
  24. ORENCIA [Suspect]
     Active Substance: ABATACEPT
     Route: 058
  25. ORENCIA [Suspect]
     Active Substance: ABATACEPT
     Route: 058
  26. ORENCIA [Suspect]
     Active Substance: ABATACEPT
     Route: 048
  27. ORENCIA [Suspect]
     Active Substance: ABATACEPT
     Route: 058
  28. ORENCIA [Suspect]
     Active Substance: ABATACEPT
     Route: 058
  29. ORENCIA [Suspect]
     Active Substance: ABATACEPT
     Route: 042
  30. ORENCIA [Suspect]
     Active Substance: ABATACEPT
     Route: 048
  31. ORENCIA [Suspect]
     Active Substance: ABATACEPT
     Route: 042
  32. ORENCIA [Suspect]
     Active Substance: ABATACEPT
     Route: 058
  33. ORENCIA [Suspect]
     Active Substance: ABATACEPT
     Route: 058
  34. SULFAMETHOXAZOLE [Suspect]
     Active Substance: SULFAMETHOXAZOLE
     Indication: Product used for unknown indication
     Route: 065
  35. PANTOPRAZOLE [Suspect]
     Active Substance: PANTOPRAZOLE
     Indication: Dyspepsia
     Route: 048
  36. VITAMIN B COMPLEX [Suspect]
     Active Substance: CYANOCOBALAMIN\DEXPANTHENOL\NIACINAMIDE\PYRIDOXINE HYDROCHLORIDE\RIBOFLAVIN 5^-PHOSPHATE SODIUM\THIA
     Indication: Product used for unknown indication
     Route: 065
  37. CETIRIZINE HYDROCHLORIDE\PSEUDOEPHEDRINE HYDROCHLORIDE [Suspect]
     Active Substance: CETIRIZINE HYDROCHLORIDE\PSEUDOEPHEDRINE HYDROCHLORIDE
     Indication: Rheumatoid arthritis
     Route: 048
  38. CETIRIZINE HYDROCHLORIDE\PSEUDOEPHEDRINE HYDROCHLORIDE [Suspect]
     Active Substance: CETIRIZINE HYDROCHLORIDE\PSEUDOEPHEDRINE HYDROCHLORIDE
     Route: 067
  39. CETIRIZINE HYDROCHLORIDE\PSEUDOEPHEDRINE HYDROCHLORIDE [Suspect]
     Active Substance: CETIRIZINE HYDROCHLORIDE\PSEUDOEPHEDRINE HYDROCHLORIDE
     Dosage: TABLET- EXTENDED RELEASE
     Route: 048
  40. TOCILIZUMAB [Suspect]
     Active Substance: TOCILIZUMAB
     Indication: Rheumatoid arthritis
     Route: 061
  41. TOCILIZUMAB [Suspect]
     Active Substance: TOCILIZUMAB
     Route: 042
  42. TOCILIZUMAB [Suspect]
     Active Substance: TOCILIZUMAB
     Route: 058
  43. SULFASALAZINE [Suspect]
     Active Substance: SULFASALAZINE
     Indication: Rheumatoid arthritis
     Route: 048
  44. SULFASALAZINE [Suspect]
     Active Substance: SULFASALAZINE
     Route: 048
  45. SULFASALAZINE [Suspect]
     Active Substance: SULFASALAZINE
     Route: 058
  46. SULFASALAZINE [Suspect]
     Active Substance: SULFASALAZINE
     Route: 048
  47. SULFASALAZINE [Suspect]
     Active Substance: SULFASALAZINE
     Route: 048
  48. SULFASALAZINE [Suspect]
     Active Substance: SULFASALAZINE
     Route: 048
  49. SULFASALAZINE [Suspect]
     Active Substance: SULFASALAZINE
     Route: 048
  50. SULFASALAZINE [Suspect]
     Active Substance: SULFASALAZINE
     Route: 065
  51. SULFASALAZINE [Suspect]
     Active Substance: SULFASALAZINE
     Route: 058
  52. MORPHINE [Suspect]
     Active Substance: MORPHINE
     Indication: Product used for unknown indication
     Route: 065
  53. VITAMIN C [Suspect]
     Active Substance: ASCORBIC ACID
     Indication: Product used for unknown indication
     Route: 048
  54. DICLOFENAC SODIUM [Suspect]
     Active Substance: DICLOFENAC SODIUM
     Indication: Product used for unknown indication
     Route: 065
  55. XELJANZ [Concomitant]
     Active Substance: TOFACITINIB CITRATE
     Indication: Product used for unknown indication
  56. RITUXIMAB [Suspect]
     Active Substance: RITUXIMAB
     Indication: Rheumatoid arthritis
     Route: 058
  57. RITUXIMAB [Suspect]
     Active Substance: RITUXIMAB
     Route: 042
  58. PHTHALYLSULFATHIAZOLE [Suspect]
     Active Substance: PHTHALYLSULFATHIAZOLE
     Indication: Rheumatoid arthritis
     Route: 048
  59. PHTHALYLSULFATHIAZOLE [Suspect]
     Active Substance: PHTHALYLSULFATHIAZOLE
     Route: 016
  60. PHTHALYLSULFATHIAZOLE [Suspect]
     Active Substance: PHTHALYLSULFATHIAZOLE
     Route: 016
  61. PHTHALYLSULFATHIAZOLE [Suspect]
     Active Substance: PHTHALYLSULFATHIAZOLE
     Route: 065
  62. NEOMYCIN [Suspect]
     Active Substance: NEOMYCIN
     Indication: Product used for unknown indication
     Route: 048
  63. METHYLPREDNISOLONE SODIUM SUCCINATE [Suspect]
     Active Substance: METHYLPREDNISOLONE SODIUM SUCCINATE
     Indication: Product used for unknown indication
     Route: 065
  64. MINOCYCLINE HYDROCHLORIDE [Suspect]
     Active Substance: MINOCYCLINE HYDROCHLORIDE
     Indication: Rheumatoid arthritis
     Route: 065
  65. COSENTYX [Suspect]
     Active Substance: SECUKINUMAB
     Indication: Rheumatoid arthritis
     Route: 065
  66. COSENTYX [Suspect]
     Active Substance: SECUKINUMAB
     Indication: Product used for unknown indication
  67. STELARA [Suspect]
     Active Substance: USTEKINUMAB
     Indication: Rheumatoid arthritis
     Route: 058
  68. STELARA [Suspect]
     Active Substance: USTEKINUMAB
     Dosage: SOLUTION SUBCUTANEOUS
     Route: 058

REACTIONS (82)
  - Liver injury [Fatal]
  - Lung disorder [Fatal]
  - Oedema peripheral [Fatal]
  - Joint swelling [Fatal]
  - Psoriasis [Fatal]
  - Therapeutic response decreased [Fatal]
  - Nasopharyngitis [Fatal]
  - Malaise [Fatal]
  - Wound infection [Fatal]
  - Wound [Fatal]
  - Lupus vulgaris [Fatal]
  - Musculoskeletal stiffness [Fatal]
  - Muscular weakness [Fatal]
  - Laryngitis [Fatal]
  - Psoriatic arthropathy [Fatal]
  - Osteoporosis [Fatal]
  - Pneumonia [Fatal]
  - Lip dry [Fatal]
  - Sleep disorder [Fatal]
  - Walking aid user [Fatal]
  - Muscle spasms [Fatal]
  - Oedema [Fatal]
  - Respiratory disorder [Fatal]
  - Migraine [Fatal]
  - Red blood cell sedimentation rate increased [Fatal]
  - Night sweats [Fatal]
  - Pruritus [Fatal]
  - Nausea [Fatal]
  - Paraesthesia [Fatal]
  - Joint range of motion decreased [Fatal]
  - Pemphigus [Fatal]
  - Sinusitis [Fatal]
  - Upper respiratory tract infection [Fatal]
  - Pulmonary fibrosis [Fatal]
  - Pericarditis [Fatal]
  - Osteoarthritis [Fatal]
  - Pain [Fatal]
  - Hip arthroplasty [Fatal]
  - Peripheral venous disease [Fatal]
  - Swollen joint count increased [Fatal]
  - Synovitis [Fatal]
  - Lupus-like syndrome [Fatal]
  - Lower limb fracture [Fatal]
  - Type 2 diabetes mellitus [Fatal]
  - Rheumatoid arthritis [Fatal]
  - Vomiting [Fatal]
  - Muscle injury [Fatal]
  - Musculoskeletal pain [Fatal]
  - Sciatica [Fatal]
  - Prescribed underdose [Fatal]
  - Wheezing [Fatal]
  - Sleep disorder due to general medical condition, insomnia type [Fatal]
  - Liver function test increased [Fatal]
  - Insomnia [Fatal]
  - Systemic lupus erythematosus [Fatal]
  - Lower respiratory tract infection [Fatal]
  - Muscle spasticity [Fatal]
  - Visual impairment [Fatal]
  - Road traffic accident [Fatal]
  - Swelling [Fatal]
  - Peripheral swelling [Fatal]
  - Retinitis [Fatal]
  - Rheumatic fever [Fatal]
  - Stomatitis [Fatal]
  - Joint stiffness [Fatal]
  - Mobility decreased [Fatal]
  - Rheumatoid factor positive [Fatal]
  - Rash [Fatal]
  - Weight increased [Fatal]
  - Tachycardia [Fatal]
  - Memory impairment [Fatal]
  - X-ray abnormal [Fatal]
  - Weight decreased [Fatal]
  - Pain in extremity [Fatal]
  - Spinal fusion surgery [Fatal]
  - Pyrexia [Fatal]
  - Spondylitis [Fatal]
  - Urticaria [Fatal]
  - Knee arthroplasty [Fatal]
  - Obesity [Fatal]
  - Liver disorder [Fatal]
  - Seronegative arthritis [Fatal]
